FAERS Safety Report 15840887 (Version 1)
Quarter: 2019Q1

REPORT INFORMATION
  Report Type: Spontaneous
  Country: US (occurrence: US)
  Receive Date: 20190118
  Receipt Date: 20190118
  Transmission Date: 20190417
  Serious: Yes (Death, Hospitalization, Other)
  Sender: FDA-Public Use
  Company Number: US-APOTEX-2019AP005383

PATIENT
  Age: 20 Year
  Sex: Female

DRUGS (1)
  1. NICOTINE. [Suspect]
     Active Substance: NICOTINE
     Indication: PRODUCT USED FOR UNKNOWN INDICATION
     Dosage: UNK
     Route: 051

REACTIONS (7)
  - Mydriasis [Fatal]
  - Cardiac arrest [Fatal]
  - Completed suicide [Fatal]
  - Brain injury [Fatal]
  - Hypertonia [Fatal]
  - Pupillary light reflex tests abnormal [Fatal]
  - Myoclonus [Fatal]
